FAERS Safety Report 18032097 (Version 1)
Quarter: 2020Q3

REPORT INFORMATION
  Report Type: Spontaneous
  Country: US (occurrence: US)
  Receive Date: 20200716
  Receipt Date: 20200716
  Transmission Date: 20201103
  Serious: Yes (Hospitalization)
  Sender: FDA-Public Use
  Company Number: None

PATIENT
  Age: 81 Year
  Sex: Male

DRUGS (1)
  1. VANCOMYCIN [Suspect]
     Active Substance: VANCOMYCIN
     Indication: WOUND INFECTION
     Route: 041
     Dates: start: 20200526, end: 20200708

REACTIONS (3)
  - Hypotension [None]
  - Rash [None]
  - Acute kidney injury [None]

NARRATIVE: CASE EVENT DATE: 20200704
